FAERS Safety Report 10207769 (Version 1)
Quarter: 2014Q2

REPORT INFORMATION
  Report Type: Spontaneous
  Country: FR (occurrence: FR)
  Receive Date: 20140530
  Receipt Date: 20140530
  Transmission Date: 20141212
  Serious: Yes (Death, Congenital Anomaly)
  Sender: FDA-Public Use
  Company Number: FR-TEVA-483610ISR

PATIENT
  Sex: Male

DRUGS (4)
  1. QVAR [Suspect]
     Route: 065
  2. ZOMIGORO [Suspect]
     Route: 065
     Dates: end: 20071209
  3. POLARAMINE [Suspect]
     Route: 065
  4. CROMABAK 20 MG/ML [Suspect]
     Route: 065

REACTIONS (1)
  - Congenital hydrocephalus [Fatal]
